FAERS Safety Report 9196417 (Version 2)
Quarter: 2013Q2

REPORT INFORMATION
  Report Type: Spontaneous
  Country: BR (occurrence: BR)
  Receive Date: 20130328
  Receipt Date: 20130430
  Transmission Date: 20140414
  Serious: Yes (Other)
  Sender: FDA-Public Use
  Company Number: BR-BRISTOL-MYERS SQUIBB COMPANY-18713693

PATIENT
  Age: 76 Year
  Sex: Female

DRUGS (5)
  1. KOMBIGLYZE XR [Suspect]
     Indication: DIABETES MELLITUS
     Dosage: 1DF:5MG/1000MG AT NIGHT?DOSE REDUCED :18MAR2013: 2.5 MG/1000MG.(HALF TAB)
     Dates: start: 20130221
  2. DIAMICRON [Suspect]
     Dosage: IN THE MORNING
  3. MICARDIS [Concomitant]
  4. SINVASCOR [Concomitant]
  5. LANSOPRAZOLE [Concomitant]
     Indication: GASTRIC DISORDER
     Dates: start: 2012

REACTIONS (5)
  - Labyrinthitis [Unknown]
  - Abdominal pain [Unknown]
  - Diarrhoea [Unknown]
  - Laziness [Unknown]
  - Medication error [Unknown]
